FAERS Safety Report 8223305-5 (Version None)
Quarter: 2012Q1

REPORT INFORMATION
  Report Type: 
  Country: None (occurrence: None)
  Receive Date: 20120321
  Receipt Date: 20120313
  Transmission Date: 20120608
  Serious: Yes (Death, Hospitalization)
  Sender: FDA-Public Use
  Company Number: DE-ROCHE-1026464

PATIENT
  Sex: Female
  Weight: 61 kg

DRUGS (8)
  1. ASPIRIN [Concomitant]
     Indication: HYPERTENSION
     Route: 048
  2. METOPROLOL SUCCINATE [Concomitant]
     Indication: HYPERTENSION
     Route: 048
  3. AVASTIN [Suspect]
     Indication: ADENOCARCINOMA
     Route: 042
     Dates: start: 20111212, end: 20120130
  4. OXALIPLATIN [Suspect]
     Indication: ADENOCARCINOMA
     Route: 042
     Dates: start: 20111212, end: 20120130
  5. PREDNISOLONE [Concomitant]
     Route: 048
  6. XELODA [Suspect]
     Indication: ADENOCARCINOMA
     Route: 048
     Dates: start: 20111212, end: 20111225
  7. XELODA [Suspect]
     Route: 048
     Dates: start: 20111225, end: 20120130
  8. LEVOTHYROXINE SODIUM [Concomitant]
     Route: 048

REACTIONS (7)
  - NEOPLASM MALIGNANT [None]
  - VOMITING [None]
  - ASTHENIA [None]
  - FALL [None]
  - GENERAL PHYSICAL HEALTH DETERIORATION [None]
  - NAUSEA [None]
  - LEUKOPENIA [None]
